FAERS Safety Report 6747640-2 (Version None)
Quarter: 2010Q2

REPORT INFORMATION
  Report Type: 
  Country: None (occurrence: None)
  Receive Date: 20100528
  Receipt Date: 20100524
  Transmission Date: 20101027
  Serious: Yes (Death, Other)
  Sender: FDA-Public Use
  Company Number: PHHY2010US23600

PATIENT
  Sex: Male
  Weight: 0.9 kg

DRUGS (2)
  1. TEGRETOL [Suspect]
     Indication: CONVULSION
     Dosage: MATERNAL DOSE: 200 MG
     Route: 064
  2. TEGRETOL [Suspect]
     Indication: GRAND MAL CONVULSION

REACTIONS (4)
  - DEATH NEONATAL [None]
  - DRUG EXPOSURE DURING PREGNANCY [None]
  - HEAD DEFORMITY [None]
  - PREMATURE BABY [None]
